FAERS Safety Report 7373117-X (Version None)
Quarter: 2011Q1

REPORT INFORMATION
  Report Type: 
  Country: None (occurrence: None)
  Receive Date: 20110324
  Receipt Date: 20110322
  Transmission Date: 20110831
  Serious: Yes (Other)
  Sender: FDA-Public Use
  Company Number: US-CEPHALON-2010006450

PATIENT
  Sex: Female

DRUGS (2)
  1. PROVIGIL [Suspect]
     Indication: SLEEP APNOEA SYNDROME
     Route: 048
     Dates: start: 20101111
  2. PROVIGIL [Suspect]
     Indication: NARCOLEPSY
     Route: 048
     Dates: start: 20101104, end: 20101110

REACTIONS (6)
  - DRUG INEFFECTIVE [None]
  - LUNG INFECTION [None]
  - SINUSITIS [None]
  - THERAPEUTIC RESPONSE UNEXPECTED [None]
  - INFLUENZA LIKE ILLNESS [None]
  - INITIAL INSOMNIA [None]
